FAERS Safety Report 9521075 (Version 2)
Quarter: 2013Q3

REPORT INFORMATION
  Report Type: Spontaneous
  Country: US (occurrence: US)
  Receive Date: 20130913
  Receipt Date: 20130923
  Transmission Date: 20140515
  Serious: No
  Sender: FDA-Public Use
  Company Number: US-009507513-1309USA002029

PATIENT
  Age: 57 Year
  Sex: Female

DRUGS (1)
  1. PROVENTIL [Suspect]
     Indication: ASTHMA
     Dosage: 90 MCG, TWO PUFFS, TWICE DAILY
     Route: 055
     Dates: start: 20130819

REACTIONS (5)
  - Dyspnoea [Not Recovered/Not Resolved]
  - Anger [Unknown]
  - Drug prescribing error [Unknown]
  - Drug dose omission [Unknown]
  - Product quality issue [Unknown]
